FAERS Safety Report 25988823 (Version 1)
Quarter: 2025Q4

REPORT INFORMATION
  Report Type: Spontaneous
  Country: US (occurrence: US)
  Receive Date: 20251103
  Receipt Date: 20251103
  Transmission Date: 20260117
  Serious: No
  Sender: RIGEL PHARMACEUTICALS
  Company Number: US-RIGEL PHARMACEUTICALS, INC-20250700034

PATIENT
  Age: 68 Year
  Sex: Female

DRUGS (1)
  1. GAVRETO [Suspect]
     Active Substance: PRALSETINIB
     Indication: Lung neoplasm malignant
     Dosage: 300 MG, QD
     Route: 048
     Dates: start: 20240814

REACTIONS (5)
  - Tooth extraction [Unknown]
  - Eye discharge [Unknown]
  - Emotional disorder [Unknown]
  - Exercise lack of [Unknown]
  - Product prescribing issue [Unknown]

NARRATIVE: CASE EVENT DATE: 20250627
